FAERS Safety Report 12565582 (Version 3)
Quarter: 2016Q3

REPORT INFORMATION
  Report Type: Spontaneous
  Country: CZ (occurrence: CZ)
  Receive Date: 20160718
  Receipt Date: 20160804
  Transmission Date: 20161109
  Serious: Yes (Other)
  Sender: FDA-Public Use
  Company Number: CZ-ASTELLAS-2016US026858

PATIENT
  Age: 66 Year
  Sex: Male

DRUGS (3)
  1. ADVAGRAF [Interacting]
     Active Substance: TACROLIMUS
     Dosage: 0.1 MG, ONCE WEEKLY
     Route: 048
  2. MYCOPHENOLATE MOFETIL. [Concomitant]
     Active Substance: MYCOPHENOLATE MOFETIL
     Indication: RENAL TRANSPLANT
     Dosage: UNK UNK, UNKNOWN FREQ.
     Route: 065
  3. ADVAGRAF [Suspect]
     Active Substance: TACROLIMUS
     Indication: RENAL TRANSPLANT
     Dosage: 0.5 MG, ONCE WEEKLY
     Route: 048
     Dates: start: 200707

REACTIONS (10)
  - Hypertension [Not Recovered/Not Resolved]
  - Hyperkalaemia [Unknown]
  - Metabolic acidosis [Recovered/Resolved]
  - Hepatic cirrhosis [Not Recovered/Not Resolved]
  - Myocardial ischaemia [Not Recovered/Not Resolved]
  - Hepatitis C [Recovered/Resolved]
  - Complications of transplanted kidney [Recovering/Resolving]
  - Transplant rejection [Recovered/Resolved]
  - Nephrotic syndrome [Recovered/Resolved]
  - Off label use [Unknown]

NARRATIVE: CASE EVENT DATE: 2006
